FAERS Safety Report 4800754-6 (Version None)
Quarter: 2005Q4

REPORT INFORMATION
  Report Type: 
  Country: None (occurrence: None)
  Receive Date: 20051011
  Receipt Date: 20050927
  Transmission Date: 20060501
  Serious: Yes (Other)
  Sender: FDA-Public Use
  Company Number: HQWYE091517MAR03

PATIENT
  Age: 52 Year
  Sex: Male

DRUGS (4)
  1. REFACTO [Suspect]
     Indication: FACTOR VIII DEFICIENCY
     Dosage: USUALLY 2000 IU, RARELY 3000 IU DOSE ON DEMAND INTRAVENOUS
     Route: 042
     Dates: start: 20021006, end: 20030311
  2. REFACTO [Suspect]
  3. REFACTO [Suspect]
  4. REFACTO [Suspect]

REACTIONS (1)
  - ANTI FACTOR VIII ANTIBODY POSITIVE [None]
